FAERS Safety Report 6922020-5 (Version None)
Quarter: 2010Q3

REPORT INFORMATION
  Report Type: 
  Country: None (occurrence: None)
  Receive Date: 20100812
  Receipt Date: 20100804
  Transmission Date: 20110219
  Serious: Yes (Other)
  Sender: FDA-Public Use
  Company Number: GB-ABBOTT-10P-167-0661989-00

PATIENT
  Age: 40 Year
  Sex: Male

DRUGS (3)
  1. KALETRA [Suspect]
     Indication: PRODUCT USED FOR UNKNOWN INDICATION
     Dates: start: 20090101
  2. ATAZANAVIR [Suspect]
     Indication: HIV INFECTION
  3. ABACAVIR SULFATE AND LAMIVUDINE [Suspect]
     Indication: HIV INFECTION

REACTIONS (2)
  - HYPERPARATHYROIDISM [None]
  - SYNOVITIS [None]
